FAERS Safety Report 8816909 (Version 1)
Quarter: 2012Q4

REPORT INFORMATION
  Report Type: Spontaneous
  Country: US (occurrence: None)
  Receive Date: 20121002
  Receipt Date: 20121002
  Transmission Date: 20130627
  Serious: Yes (Life-Threatening, Hospitalization, Disabling, Other)
  Sender: FDA-Public Use
  Company Number: None

PATIENT
  Sex: Male
  Weight: 101.61 kg

DRUGS (1)
  1. CARVEDILOL [Suspect]
     Indication: HEART FAILURE
     Dosage: 1 2x daily buccal
     Route: 002
     Dates: start: 20050511, end: 20120829

REACTIONS (7)
  - Balance disorder [None]
  - Dizziness [None]
  - Abdominal distension [None]
  - Chest discomfort [None]
  - Gait disturbance [None]
  - Cerumen impaction [None]
  - Vision blurred [None]
